FAERS Safety Report 7367098-2 (Version None)
Quarter: 2011Q1

REPORT INFORMATION
  Report Type: 
  Country: None (occurrence: None)
  Receive Date: 20110322
  Receipt Date: 20110308
  Transmission Date: 20110831
  Serious: Yes (Other)
  Sender: FDA-Public Use
  Company Number: FR-JNJFOC-20080302318

PATIENT
  Sex: Female
  Weight: 3.2 kg

DRUGS (4)
  1. AZATHIOPRINE [Concomitant]
  2. INFLIXIMAB [Suspect]
     Route: 064
  3. INFLIXIMAB [Suspect]
     Route: 064
  4. INFLIXIMAB [Suspect]
     Indication: DRUG EXPOSURE DURING PREGNANCY
     Route: 064

REACTIONS (2)
  - FOETAL DISTRESS SYNDROME [None]
  - NEONATAL ASPIRATION [None]
